FAERS Safety Report 10089184 (Version 1)
Quarter: 2014Q2

REPORT INFORMATION
  Report Type: Spontaneous
  Country: CH (occurrence: CH)
  Receive Date: 20140421
  Receipt Date: 20140421
  Transmission Date: 20141212
  Serious: Yes (Other)
  Sender: FDA-Public Use
  Company Number: CH-JNJFOC-20140407093

PATIENT
  Sex: Male

DRUGS (2)
  1. NIZORAL [Suspect]
     Indication: PRODUCT USED FOR UNKNOWN INDICATION
     Route: 065
  2. ALMOREXANT [Interacting]
     Indication: INSOMNIA
     Route: 065

REACTIONS (4)
  - Syncope [Unknown]
  - Fatigue [Unknown]
  - Somnolence [Unknown]
  - Drug interaction [Unknown]
